FAERS Safety Report 16023045 (Version 1)
Quarter: 2019Q1

REPORT INFORMATION
  Report Type: Spontaneous
  Country: FR (occurrence: FR)
  Receive Date: 20190301
  Receipt Date: 20190301
  Transmission Date: 20190418
  Serious: Yes (Other)
  Sender: FDA-Public Use
  Company Number: FR-PFIZER INC-2019087143

PATIENT
  Age: 38 Year
  Sex: Female
  Weight: 76 kg

DRUGS (3)
  1. ROVAMYCINE [SPIRAMYCIN ADEPATE] [Interacting]
     Active Substance: SPIRAMYCIN ADIPATE
     Indication: LUNG INFECTION
     Dosage: UNK
     Dates: start: 20190122, end: 20190128
  2. ZITHROMAX [Suspect]
     Active Substance: AZITHROMYCIN DIHYDRATE
     Indication: LUNG INFECTION
     Dosage: 250 MG, 1X/DAY
     Route: 048
     Dates: start: 20190129, end: 20190130
  3. LEVOFLOXACINE KABI [Interacting]
     Active Substance: LEVOFLOXACIN
     Indication: LUNG INFECTION
     Dosage: UNK
     Dates: start: 20190122, end: 20190128

REACTIONS (2)
  - Electrocardiogram QT prolonged [Recovered/Resolved]
  - Drug interaction [Recovered/Resolved]

NARRATIVE: CASE EVENT DATE: 20190130
